FAERS Safety Report 6589954-5 (Version None)
Quarter: 2010Q1

REPORT INFORMATION
  Report Type: 
  Country: None (occurrence: None)
  Receive Date: 20100219
  Receipt Date: 20100209
  Transmission Date: 20100710
  Serious: Yes (Hospitalization)
  Sender: FDA-Public Use
  Company Number: US-ALEXION-A201000127

PATIENT
  Sex: Female
  Weight: 70.748 kg

DRUGS (11)
  1. SOLIRIS [Suspect]
     Indication: PAROXYSMAL NOCTURNAL HAEMOGLOBINURIA
     Dosage: 600 MG, QW X4
     Route: 042
     Dates: start: 20090916, end: 20091006
  2. SOLIRIS [Suspect]
     Dosage: 900 MG, UNK
     Route: 042
     Dates: start: 20091013
  3. NORVASC [Concomitant]
  4. HYDRALAZINE AND BENAZEPRIL [Concomitant]
  5. SIMVASTATIN [Concomitant]
  6. GLIPIZIDE [Concomitant]
  7. NEURONTIN [Concomitant]
  8. CYCLOSPORINE [Concomitant]
  9. EXJADE [Concomitant]
  10. NEXIUM [Concomitant]
  11. ZOFRAN [Concomitant]

REACTIONS (6)
  - ABDOMINAL PAIN UPPER [None]
  - BLOOD PRODUCT TRANSFUSION DEPENDENT [None]
  - CONDITION AGGRAVATED [None]
  - COUGH [None]
  - FATIGUE [None]
  - VOMITING [None]
